FAERS Safety Report 14502657 (Version 1)
Quarter: 2018Q1

REPORT INFORMATION
  Report Type: Spontaneous
  Country: US (occurrence: US)
  Receive Date: 20180208
  Receipt Date: 20180208
  Transmission Date: 20180509
  Serious: Yes (Hospitalization)
  Sender: FDA-Public Use
  Company Number: US-ASTRAZENECA-2018SE15184

PATIENT
  Age: 192 Day
  Sex: Male
  Weight: 6 kg

DRUGS (2)
  1. FUROSEMIDE. [Concomitant]
     Active Substance: FUROSEMIDE
     Dosage: TWO TIMES A DAY
  2. SYNAGIS [Suspect]
     Active Substance: PALIVIZUMAB
     Indication: CARDIOVASCULAR EVENT PROPHYLAXIS
     Route: 030

REACTIONS (2)
  - Pneumonia [Unknown]
  - Wheezing [Unknown]

NARRATIVE: CASE EVENT DATE: 20180201
